FAERS Safety Report 6288400-9 (Version None)
Quarter: 2009Q3

REPORT INFORMATION
  Report Type: 
  Country: None (occurrence: None)
  Receive Date: 20090729
  Receipt Date: 20090720
  Transmission Date: 20100115
  Serious: Yes (Other)
  Sender: FDA-Public Use
  Company Number: A0783528A

PATIENT
  Age: 67 Year
  Sex: Male

DRUGS (3)
  1. REQUIP XL [Suspect]
     Indication: PARKINSON'S DISEASE
     Dosage: 8MG SEE DOSAGE TEXT
     Route: 048
  2. AZILECT [Concomitant]
  3. FLUOCINONIDE [Concomitant]

REACTIONS (5)
  - ARRHYTHMIA [None]
  - ATRIAL FLUTTER [None]
  - CARDIOVERSION [None]
  - PALPITATIONS [None]
  - TACHYCARDIA [None]
